FAERS Safety Report 8618102-2 (Version None)
Quarter: 2012Q3

REPORT INFORMATION
  Report Type: 
  Country: None (occurrence: None)
  Receive Date: 20120824
  Receipt Date: 20120503
  Transmission Date: 20120928
  Serious: No
  Sender: FDA-Public Use
  Company Number: US-ASTRAZENECA-2012SE28693

PATIENT
  Age: 22 Year
  Sex: Male
  Weight: 65.8 kg

DRUGS (1)
  1. SYMBICORT [Suspect]
     Indication: ASTHMA
     Dosage: ONE PUFF DAILY.
     Route: 055

REACTIONS (3)
  - ASTHMA [None]
  - COUGH [None]
  - INTENTIONAL DRUG MISUSE [None]
